FAERS Safety Report 8141824-7 (Version None)
Quarter: 2012Q1

REPORT INFORMATION
  Report Type: 
  Country: None (occurrence: None)
  Receive Date: 20120216
  Receipt Date: 20120206
  Transmission Date: 20120608
  Serious: Yes (Other)
  Sender: FDA-Public Use
  Company Number: ES-ELI_LILLY_AND_COMPANY-ES201112006570

PATIENT
  Sex: Female

DRUGS (11)
  1. SINVASTATINA [Concomitant]
     Indication: HYPERLIPIDAEMIA
     Dosage: 1 DF, QD
     Route: 048
  2. PROTELOS [Concomitant]
     Indication: OSTEOPOROSIS
     Dosage: 1 DF, QD
     Route: 048
     Dates: start: 20111201
  3. DIOVAN HCT [Concomitant]
     Indication: HYPERTENSION
     Dosage: 1 DF, QD
     Route: 048
  4. PLAVIX [Concomitant]
     Indication: PROMOTION OF PERIPHERAL CIRCULATION
     Dosage: 1 DF, QD
     Route: 048
  5. METHOTREXATE [Concomitant]
     Indication: ARTHRITIS
     Dosage: 1 DF, 2/W
     Route: 048
  6. FORTEO [Suspect]
     Indication: OSTEOPOROSIS
     Dosage: 20 UG, QD
     Route: 058
     Dates: start: 20100923, end: 20111218
  7. OMEPRAZOLE [Concomitant]
     Indication: GASTRIC DISORDER
     Dosage: 1 DF, QD
     Route: 048
  8. PARACETAMOL [Concomitant]
     Indication: PAIN
     Dosage: 1 DF, BID
     Route: 048
  9. LORAZEPAM [Concomitant]
     Indication: SLEEP DISORDER
     Route: 048
  10. VENLAFAXINE HCL [Concomitant]
     Indication: DEPRESSION
     Dosage: 1 DF, QD
     Route: 048
  11. ACFOL [Concomitant]
     Dosage: 1 DF, WEEKLY (1/W)
     Route: 048

REACTIONS (1)
  - OSTEITIS DEFORMANS [None]
